FAERS Safety Report 5812755-X (Version None)
Quarter: 2008Q3

REPORT INFORMATION
  Report Type: 
  Country: None (occurrence: None)
  Receive Date: 20080714
  Receipt Date: 20080703
  Transmission Date: 20090109
  Serious: Yes (Hospitalization)
  Sender: FDA-Public Use
  Company Number: 2008AL007874

PATIENT
  Age: 54 Year
  Sex: Female

DRUGS (7)
  1. DIGOXIN [Suspect]
     Indication: HEART VALVE INCOMPETENCE
     Dosage: 0.12MG, QD, PO
     Route: 048
     Dates: start: 20071101
  2. ASPIRIN [Concomitant]
  3. LASIX [Concomitant]
  4. POTASSIUM CHLORIDE [Concomitant]
  5. COREG [Concomitant]
  6. LISINOPRIL [Concomitant]
  7. ALDACTONE [Concomitant]

REACTIONS (2)
  - HEART VALVE INCOMPETENCE [None]
  - PULMONARY OEDEMA [None]
